FAERS Safety Report 15536881 (Version 1)
Quarter: 2018Q4

REPORT INFORMATION
  Report Type: Report from Study
  Country: IT (occurrence: IT)
  Receive Date: 20181022
  Receipt Date: 20181022
  Transmission Date: 20190205
  Serious: Yes (Death)
  Sender: FDA-Public Use
  Company Number: IT-TEVA-2018-IT-966891

PATIENT
  Age: 71 Year
  Sex: Male

DRUGS (3)
  1. DUOPLAVIN 75 MG/100 MG FILM-COATED TABLETS [Concomitant]
  2. METFORMIN [Suspect]
     Active Substance: METFORMIN HYDROCHLORIDE
     Indication: DIABETES MELLITUS
     Route: 065
  3. NORMIX 200 MG COMPRESSE RIVESTITE CON FILM [Concomitant]
     Active Substance: RIFAXIMIN

REACTIONS (6)
  - Diarrhoea [Fatal]
  - Acute kidney injury [Fatal]
  - Hypotonia [Fatal]
  - Shock [Fatal]
  - Hypotension [Fatal]
  - Lactic acidosis [Fatal]

NARRATIVE: CASE EVENT DATE: 20180916
